FAERS Safety Report 21988501 (Version 1)
Quarter: 2023Q1

REPORT INFORMATION
  Report Type: Spontaneous
  Country: US (occurrence: US)
  Receive Date: 20230214
  Receipt Date: 20230214
  Transmission Date: 20230418
  Serious: Yes (Other)
  Sender: FDA-Public Use
  Company Number: US-BRISTOL-MYERS SQUIBB COMPANY-2023-020290

PATIENT
  Age: 75 Year
  Sex: Male

DRUGS (1)
  1. POMALYST [Suspect]
     Active Substance: POMALIDOMIDE
     Indication: Plasma cell myeloma
     Dosage: TAKE 1 TABLET BY MOUTH DAILY ON DAYS 1-21 OF EACH 28 DAYS CYCLE
     Route: 048
     Dates: start: 20230111

REACTIONS (2)
  - Pneumonia [Unknown]
  - Rash [Unknown]
